FAERS Safety Report 7600944-3 (Version None)
Quarter: 2011Q3

REPORT INFORMATION
  Report Type: 
  Country: None (occurrence: None)
  Receive Date: 20110711
  Receipt Date: 20110627
  Transmission Date: 20111222
  Serious: Yes (Death, Hospitalization)
  Sender: FDA-Public Use
  Company Number: BD-GENENTECH-320849

PATIENT
  Age: 21 Year
  Sex: Male

DRUGS (1)
  1. LUCENTIS [Suspect]
     Indication: PRODUCT USED FOR UNKNOWN INDICATION
     Dosage: UNK UNK, 1/MONTH
     Route: 031
     Dates: start: 20100930

REACTIONS (1)
  - POST PROCEDURAL COMPLICATION [None]
